FAERS Safety Report 9473242 (Version 1)
Quarter: 2013Q3

REPORT INFORMATION
  Report Type: Spontaneous
  Country: US (occurrence: US)
  Receive Date: 20130823
  Receipt Date: 20130823
  Transmission Date: 20140515
  Serious: No
  Sender: FDA-Public Use
  Company Number: US-BRISTOL-MYERS SQUIBB COMPANY-18816710

PATIENT
  Age: 49 Year
  Sex: Male
  Weight: 102.49 kg

DRUGS (10)
  1. SPRYCEL (CML) TABS 100 MG [Suspect]
     Route: 048
  2. XANAX [Concomitant]
     Dosage: TABS
  3. ONDANSETRON [Concomitant]
     Dosage: TABS
  4. NAPROXEN SODIUM [Concomitant]
     Dosage: TABS
  5. LISINOPRIL [Concomitant]
     Dosage: TABS
  6. ALLOPURINOL [Concomitant]
     Dosage: TABS
  7. LACTASE ENZYME [Concomitant]
     Dosage: 1DF:3000UNIT?TABS
  8. FISH OIL [Concomitant]
     Dosage: CAPS
  9. METAMUCIL [Concomitant]
     Dosage: CAPS
  10. FENOFIBRATE [Concomitant]
     Dosage: TABS

REACTIONS (1)
  - Diarrhoea [Unknown]
